FAERS Safety Report 5168463-4 (Version None)
Quarter: 2006Q4

REPORT INFORMATION
  Report Type: 
  Country: None (occurrence: None)
  Receive Date: 20061208
  Receipt Date: 20061130
  Transmission Date: 20070319
  Serious: Yes (Hospitalization)
  Sender: FDA-Public Use
  Company Number: RO-ROCHE-473147

PATIENT
  Age: 52 Year
  Sex: Female
  Weight: 98 kg

DRUGS (4)
  1. PEGASYS [Suspect]
     Dosage: FORM REPORTED AS PFS.
     Route: 058
     Dates: start: 20060612, end: 20061016
  2. PEGASYS [Suspect]
     Route: 058
     Dates: start: 20061115
  3. COPEGUS [Suspect]
     Route: 048
     Dates: start: 20060612, end: 20061016
  4. COPEGUS [Suspect]
     Route: 048
     Dates: start: 20061115

REACTIONS (1)
  - ACUTE FEBRILE NEUTROPHILIC DERMATOSIS [None]
